FAERS Safety Report 4585321-4 (Version None)
Quarter: 2005Q1

REPORT INFORMATION
  Report Type: 
  Country: None (occurrence: None)
  Receive Date: 20050214
  Receipt Date: 20050203
  Transmission Date: 20050727
  Serious: Yes (Hospitalization)
  Sender: FDA-Public Use
  Company Number: 2005012247

PATIENT
  Age: 76 Year
  Sex: Male

DRUGS (6)
  1. DOXORUBICIN HYDROCHLORIDE [Suspect]
     Indication: ILL-DEFINED DISORDER
     Dosage: 96.5 MG (CYCLIC; INTERVAL: 1 IN 3 WEEKS), INTRAVENOUS
     Route: 042
     Dates: start: 20041008
  2. PREDNISONE TAB [Suspect]
     Indication: ILL-DEFINED DISORDER
     Dosage: 100 MG (CYCLIC; INTERVAL: 1 IN 5 DAYS), ORAL
     Route: 048
     Dates: start: 20041008
  3. VINCRISTINE SULFATE [Suspect]
     Indication: ILL-DEFINED DISORDER
     Dosage: 2 MG (INTERVAL: 1 IN 3 WEEKS), INTRAVENOUS
     Route: 042
     Dates: start: 20041008
  4. CYCLOPHOSPHAMIDE [Suspect]
     Indication: ILL-DEFINED DISORDER
     Dosage: 1447.5 MG (CYCLIC; INTERVAL: 1 IN 3 WEEKS), INTRAVENOUS
     Route: 042
     Dates: start: 20041008
  5. PEGFILGRASTIM (PEGFILGRASTIM) [Suspect]
     Indication: NON-HODGKIN'S LYMPHOMA
     Dosage: 6 MG (CYCLIC; INTREVAL: 1 IN 3 WEEKS), SUBCUTANEOUS
     Route: 058
     Dates: start: 20041008, end: 20041210
  6. RITUXIMAB (RITUXIMAB) [Suspect]
     Indication: ILL-DEFINED DISORDER
     Dosage: 723.75 MG (CYCLIC; INTERVAL: 1 IN 3 WEEKS), INTRAVENOUS
     Route: 042
     Dates: start: 20041008

REACTIONS (8)
  - ACUTE MYOCARDIAL INFARCTION [None]
  - CARDIAC FAILURE CONGESTIVE [None]
  - CORONARY ARTERY DISEASE [None]
  - CORONARY ARTERY OCCLUSION [None]
  - INFLAMMATION [None]
  - PULMONARY HYPERTENSION [None]
  - VENTRICULAR HYPOKINESIA [None]
  - WHITE BLOOD CELL COUNT INCREASED [None]
